FAERS Safety Report 10549150 (Version 1)
Quarter: 2014Q4

REPORT INFORMATION
  Report Type: Spontaneous
  Country: US (occurrence: None)
  Receive Date: 20141016
  Receipt Date: 20141016
  Transmission Date: 20150529
  Serious: No
  Sender: FDA-Public Use
  Company Number: CABO-14004389

PATIENT
  Age: 58 Year
  Sex: Male

DRUGS (9)
  1. COMPAZINE (PROCHLORPERAZINE MALEATE) [Concomitant]
  2. CALCIUM (CALCIUM) [Concomitant]
     Active Substance: CALCIUM
  3. FOLATE (FOLIC ACID) [Concomitant]
  4. COMETRIQ [Suspect]
     Active Substance: CABOZANTINIB S-MALATE
     Indication: LUNG NEOPLASM MALIGNANT
     Route: 048
     Dates: start: 20140606
  5. OXYCODONE (OXYCODONE) [Concomitant]
     Active Substance: OXYCODONE
  6. PENICILLIN (BENZYLPENICILLIN) (UNKNOWN) (BENZYLPENICILLIN) [Concomitant]
     Active Substance: PENICILLIN G
  7. ZOFRAN (ONDANSETRON HYDROCHLORIDE) [Concomitant]
  8. VITAMIN D (COLECALCIFEROL) [Concomitant]
  9. OMEPRAZOLE (OMEPRAZOLE) [Concomitant]
     Active Substance: OMEPRAZOLE

REACTIONS (5)
  - Dry mouth [None]
  - Oral pain [None]
  - Off label use [None]
  - Constipation [None]
  - Dysphonia [None]

NARRATIVE: CASE EVENT DATE: 2014
